FAERS Safety Report 5772977-3 (Version None)
Quarter: 2008Q2

REPORT INFORMATION
  Report Type: 
  Country: None (occurrence: None)
  Receive Date: 20080611
  Receipt Date: 20080604
  Transmission Date: 20081010
  Serious: Yes (Death)
  Sender: FDA-Public Use
  Company Number: US023753

PATIENT
  Sex: Male

DRUGS (1)
  1. TREANDA [Suspect]
     Dosage: 100 MG/M2 DAY 1 AND DAY 2 INTRAVENOUS
     Route: 042

REACTIONS (1)
  - DEATH [None]
